FAERS Safety Report 18361345 (Version 1)
Quarter: 2020Q4

REPORT INFORMATION
  Report Type: Spontaneous
  Country: US (occurrence: US)
  Receive Date: 20201008
  Receipt Date: 20201008
  Transmission Date: 20210114
  Serious: No
  Sender: FDA-Public Use
  Company Number: US-ROMARKLABS-2020-US-000053

PATIENT
  Age: 58 Year
  Sex: Female

DRUGS (2)
  1. ALINIA [Suspect]
     Active Substance: NITAZOXANIDE
     Indication: GIARDIASIS
     Dosage: TAKE 1 TABLET BY MOUTH TWICE DAILY FOR 7 DAYS
     Route: 048
     Dates: start: 20200309
  2. MULTIPLE SUPPLEMENTS UNSPECIFIED [Concomitant]
     Indication: NUTRITIONAL SUPPLEMENTATION

REACTIONS (1)
  - Chest discomfort [Unknown]

NARRATIVE: CASE EVENT DATE: 20200309
